FAERS Safety Report 4398742-X (Version None)
Quarter: 2004Q3

REPORT INFORMATION
  Report Type: 
  Country: None (occurrence: None)
  Receive Date: 20040712
  Receipt Date: 20040621
  Transmission Date: 20050211
  Serious: Yes (Hospitalization)
  Sender: FDA-Public Use
  Company Number: JP_040603523

PATIENT
  Age: 51 Year
  Sex: Male
  Weight: 43 kg

DRUGS (6)
  1. ZYPREXA [Suspect]
     Indication: SCHIZOPHRENIA
     Dosage: 10 MG DAY
     Dates: start: 20040322, end: 20040620
  2. BIPERIDEN HYDROCHLORIDE [Concomitant]
  3. LORAZEPAM [Concomitant]
  4. FLUNITRAZEPAM [Concomitant]
  5. CETRAXATE HYDROCHLORIDE [Concomitant]
  6. ZANTAC [Concomitant]

REACTIONS (2)
  - ANXIETY [None]
  - EXCITABILITY [None]
